FAERS Safety Report 6145346-4 (Version None)
Quarter: 2009Q2

REPORT INFORMATION
  Report Type: 
  Country: None (occurrence: None)
  Receive Date: 20090402
  Receipt Date: 20090319
  Transmission Date: 20091009
  Serious: Yes (Hospitalization)
  Sender: FDA-Public Use
  Company Number: KV200900406

PATIENT
  Age: 49 Year
  Sex: Female

DRUGS (8)
  1. MORPHINE SULFATE [Suspect]
     Indication: COMPLEX REGIONAL PAIN SYNDROME
     Dosage: 15 MG, TID, ORAL
     Route: 048
     Dates: start: 20080515, end: 20080517
  2. MORPHINE SULFATE [Suspect]
     Indication: COMPLEX REGIONAL PAIN SYNDROME
     Dosage: 30 MG, TID, ORAL
     Route: 048
     Dates: start: 20080517
  3. DIOVAN [Concomitant]
  4. HYDROCODONE (HYDROCODONE) [Concomitant]
  5. VERAPAMIL [Concomitant]
  6. LYRICA [Concomitant]
  7. PROTONIX [Concomitant]
  8. MICROZIDE [Concomitant]

REACTIONS (2)
  - CONSTIPATION [None]
  - LARGE INTESTINE PERFORATION [None]
